FAERS Safety Report 23107646 (Version 1)
Quarter: 2023Q4

REPORT INFORMATION
  Report Type: Spontaneous
  Country: CN (occurrence: None)
  Receive Date: 20231026
  Receipt Date: 20231026
  Transmission Date: 20240110
  Serious: Yes (Other)
  Sender: FDA-Public Use
  Company Number: 2023A240280

PATIENT
  Age: 90 Year
  Sex: Female
  Weight: 60 kg

DRUGS (4)
  1. IMFINZI [Suspect]
     Active Substance: DURVALUMAB
     Indication: Small cell lung cancer extensive stage
     Dosage: 1000MG/PERIOD
     Route: 042
     Dates: start: 20230506, end: 20230506
  2. CARBOPLATIN [Concomitant]
     Active Substance: CARBOPLATIN
  3. CISPLATIN [Concomitant]
     Active Substance: CISPLATIN
  4. ETOPOSIDE [Concomitant]
     Active Substance: ETOPOSIDE

REACTIONS (4)
  - Pneumonitis [Unknown]
  - Fall [Unknown]
  - Pleural effusion [Unknown]
  - Lower limb fracture [Unknown]
